FAERS Safety Report 8153716-8 (Version None)
Quarter: 2012Q1

REPORT INFORMATION
  Report Type: 
  Country: None (occurrence: None)
  Receive Date: 20120221
  Receipt Date: 20120210
  Transmission Date: 20120608
  Serious: Yes (Death)
  Sender: FDA-Public Use
  Company Number: US-PFIZER INC-2012036881

PATIENT
  Sex: Female

DRUGS (1)
  1. VFEND [Suspect]
     Indication: BREAST DISORDER
     Dosage: 200MG, 2 TABLETS TWICE A DAY
     Dates: start: 20120104

REACTIONS (1)
  - DEATH [None]
